FAERS Safety Report 7524914-9 (Version None)
Quarter: 2011Q2

REPORT INFORMATION
  Report Type: 
  Country: None (occurrence: None)
  Receive Date: 20110606
  Receipt Date: 20110128
  Transmission Date: 20111010
  Serious: Yes (Other)
  Sender: FDA-Public Use
  Company Number: US-BAYER-2010-002141

PATIENT
  Age: 51 Year
  Sex: Female
  Weight: 68 kg

DRUGS (5)
  1. CRESTOR [Concomitant]
     Route: 048
  2. HYDROCHLOROTHIAZIDE [Concomitant]
     Indication: POLYURIA
     Dosage: 25 MG, UNK
     Dates: start: 20020101
  3. YAZ [Suspect]
     Indication: CONTRACEPTION
     Dosage: UNK
     Route: 048
     Dates: start: 20061019, end: 20070501
  4. LOTREL [Concomitant]
     Indication: HYPERTENSION
     Dosage: 10 MG, UNK
     Route: 048
     Dates: start: 20020101
  5. ASCORBIC ACID [Concomitant]

REACTIONS (8)
  - PYREXIA [None]
  - FLATULENCE [None]
  - PAIN [None]
  - POSTOPERATIVE FEVER [None]
  - CHOLECYSTITIS [None]
  - POST PROCEDURAL COMPLICATION [None]
  - GALLBLADDER DISORDER [None]
  - CHOLELITHIASIS [None]
